FAERS Safety Report 24252930 (Version 6)
Quarter: 2024Q4

REPORT INFORMATION
  Report Type: Report from Study
  Country: CN (occurrence: CN)
  Receive Date: 20240827
  Receipt Date: 20241108
  Transmission Date: 20250115
  Serious: Yes (Hospitalization, Other)
  Sender: DR REDDYS
  Company Number: CN-RDY-CLI/CHN/24/0012356

PATIENT
  Age: 18 Month
  Sex: Male
  Weight: 10 kg

DRUGS (4)
  1. VIGABATRIN [Suspect]
     Active Substance: VIGABATRIN
     Indication: Product used for unknown indication
     Dosage: 1 BAG USED PER DAY
     Route: 065
     Dates: start: 20240704, end: 20240704
  2. VIGABATRIN [Suspect]
     Active Substance: VIGABATRIN
     Dosage: 2 BAGS USED PER DAY
     Route: 065
     Dates: start: 20240705, end: 20240707
  3. VIGABATRIN [Suspect]
     Active Substance: VIGABATRIN
     Dosage: 2 BAGS USED PER DAY
     Route: 065
     Dates: start: 20240708, end: 20240709
  4. VIGABATRIN [Suspect]
     Active Substance: VIGABATRIN
     Dosage: 2 BAGS USED PER DAY
     Route: 065
     Dates: start: 20240710, end: 20240925

REACTIONS (5)
  - Pneumonia mycoplasmal [Recovered/Resolved]
  - Adenovirus infection [Recovered/Resolved]
  - Pneumonia [Recovered/Resolved]
  - Cough [Recovered/Resolved]
  - Laryngitis [Recovered/Resolved]

NARRATIVE: CASE EVENT DATE: 20240801
